FAERS Safety Report 16457896 (Version 4)
Quarter: 2021Q2

REPORT INFORMATION
  Report Type: Report from Study
  Country: ZA (occurrence: ZA)
  Receive Date: 20190620
  Receipt Date: 20210507
  Transmission Date: 20210716
  Serious: Yes (Hospitalization, Other)
  Sender: FDA-Public Use
  Company Number: ZA-VIIV HEALTHCARE LIMITED-ZA2019GSK109957

PATIENT
  Age: 31 Year
  Sex: Female
  Weight: 79.1 kg

DRUGS (6)
  1. MAYOGEL [Concomitant]
     Indication: GASTROENTERITIS
     Dosage: UNK
     Route: 048
     Dates: end: 20190507
  2. DMPA [Concomitant]
     Indication: CONTRACEPTION
     Dosage: UNK
     Route: 030
     Dates: end: 20190404
  3. ETHINYL ESTRADIOL + LEVONORGESTREL [Concomitant]
     Active Substance: ETHINYL ESTRADIOL\LEVONORGESTREL
     Indication: ORAL CONTRACEPTION
  4. PROVERA [Concomitant]
     Active Substance: MEDROXYPROGESTERONE ACETATE
     Dosage: UNK
     Dates: start: 20190404
  5. EMTRICITABINE + TENOFOVIR [Suspect]
     Active Substance: EMTRICITABINE\TENOFOVIR
     Indication: PROPHYLAXIS AGAINST HIV INFECTION
     Dosage: 1 DF, QD
     Route: 048
     Dates: start: 20190416, end: 20190515
  6. ETHINYL ESTRADIOL + LEVONORGESTREL [Concomitant]
     Active Substance: ETHINYL ESTRADIOL\LEVONORGESTREL
     Indication: ABNORMAL UTERINE BLEEDING
     Dosage: UNK
     Route: 048
     Dates: end: 20190529

REACTIONS (1)
  - Hepatotoxicity [Recovered/Resolved]

NARRATIVE: CASE EVENT DATE: 20190605
